FAERS Safety Report 7504356-2 (Version None)
Quarter: 2011Q2

REPORT INFORMATION
  Report Type: 
  Country: None (occurrence: None)
  Receive Date: 20110525
  Receipt Date: 20110512
  Transmission Date: 20111010
  Serious: Yes (Hospitalization)
  Sender: FDA-Public Use
  Company Number: US-UCBSA-031949

PATIENT
  Sex: Female

DRUGS (4)
  1. ACIPHEX [Concomitant]
     Dosage: DOSE 20
     Route: 048
  2. MERCAPTOPURINE [Suspect]
     Indication: CROHN'S DISEASE
     Route: 048
     Dates: start: 20090501
  3. CIMZIA [Suspect]
     Indication: CROHN'S DISEASE
     Route: 058
     Dates: start: 20110104
  4. BENICAR [Concomitant]
     Dosage: DOSE 20
     Route: 048

REACTIONS (2)
  - INTESTINAL FISTULA [None]
  - ABSCESS INTESTINAL [None]
